FAERS Safety Report 23738299 (Version 4)
Quarter: 2024Q2

REPORT INFORMATION
  Report Type: Spontaneous
  Country: US (occurrence: US)
  Receive Date: 20240412
  Receipt Date: 20240513
  Transmission Date: 20240716
  Serious: No
  Sender: FDA-Public Use
  Company Number: US-PFIZER INC-202400084783

PATIENT
  Age: 68 Year
  Sex: Female

DRUGS (8)
  1. VELSIPITY [Suspect]
     Active Substance: ETRASIMOD ARGININE
     Indication: Colitis ulcerative
     Dosage: TAKING MY PILL (VELSIPITY) AT 9 PM EVERY NIGHT
     Dates: start: 202403, end: 2024
  2. PREDNISONE [Suspect]
     Active Substance: PREDNISONE
     Dosage: UNK
  3. MESALAMINE [Suspect]
     Active Substance: MESALAMINE
     Dosage: UNK
  4. BREO ELLIPTA [Concomitant]
     Active Substance: FLUTICASONE FUROATE\VILANTEROL TRIFENATATE
     Indication: Asthma
     Dosage: USE INHALER EVERY DAY
     Route: 055
  5. TYLENOL [Concomitant]
     Active Substance: ACETAMINOPHEN
     Indication: Pain
     Dosage: UNK
  6. NORCO [Concomitant]
     Active Substance: ACETAMINOPHEN\HYDROCODONE BITARTRATE
     Indication: Pain
     Dosage: UNK
  7. DICYCLOMINE [Concomitant]
     Active Substance: DICYCLOMINE HYDROCHLORIDE
     Dosage: UNK
  8. NYSTATIN [Concomitant]
     Active Substance: NYSTATIN
     Dosage: UNK

REACTIONS (5)
  - Product dose omission issue [Unknown]
  - Weight decreased [Unknown]
  - Illness [Unknown]
  - Candida infection [Unknown]
  - Memory impairment [Unknown]

NARRATIVE: CASE EVENT DATE: 20240101
